FAERS Safety Report 15482662 (Version 1)
Quarter: 2018Q4

REPORT INFORMATION
  Report Type: Spontaneous
  Country: NP (occurrence: NP)
  Receive Date: 20181010
  Receipt Date: 20181010
  Transmission Date: 20190205
  Serious: Yes (Death, Life-Threatening, Other)
  Sender: FDA-Public Use
  Company Number: NP-FRESENIUS KABI-FK201810462

PATIENT
  Age: 17 Year
  Sex: Female

DRUGS (3)
  1. SCOPOLAMINE (MANUFACTURER UNKNOWN) [Suspect]
     Active Substance: SCOPOLAMINE
     Indication: PRODUCT USED FOR UNKNOWN INDICATION
     Route: 065
  2. PHENYTOIN. [Suspect]
     Active Substance: PHENYTOIN
     Indication: GENERALISED TONIC-CLONIC SEIZURE
     Route: 065
  3. DICLOFENAC SODIUM. [Suspect]
     Active Substance: DICLOFENAC SODIUM
     Indication: PRODUCT USED FOR UNKNOWN INDICATION
     Route: 065

REACTIONS (10)
  - Inappropriate antidiuretic hormone secretion [Not Recovered/Not Resolved]
  - Respiratory paralysis [Fatal]
  - Drug-disease interaction [Fatal]
  - Porphyria [Not Recovered/Not Resolved]
  - Acute respiratory failure [Fatal]
  - Quadriplegia [Not Recovered/Not Resolved]
  - Seizure [Not Recovered/Not Resolved]
  - Neuropathy peripheral [Not Recovered/Not Resolved]
  - Intracranial pressure increased [Fatal]
  - Pneumonia aspiration [Unknown]
